FAERS Safety Report 5530041-2 (Version None)
Quarter: 2007Q4

REPORT INFORMATION
  Report Type: 
  Country: None (occurrence: None)
  Receive Date: 20071127
  Receipt Date: 20071112
  Transmission Date: 20080405
  Serious: Yes (Death, Hospitalization)
  Sender: FDA-Public Use
  Company Number: 2007002212

PATIENT
  Age: 63 Year
  Sex: Male

DRUGS (5)
  1. ERLOTINIB [Suspect]
     Indication: NON-SMALL CELL LUNG CANCER
     Dosage: 150 MG, QD, ORAL
     Route: 048
  2. BEVACIZUMAB [Suspect]
     Indication: NON-SMALL CELL LUNG CANCER
     Dosage: 15MG/KG, Q3W, INTRAVENOUS
     Route: 042
  3. ANTIFUNGAL [Concomitant]
  4. PACLITAXEL [Concomitant]
  5. CARBOPLATIN [Concomitant]

REACTIONS (4)
  - FALL [None]
  - HAEMOPTYSIS [None]
  - HAEMORRHAGE [None]
  - OESOPHAGEAL ULCER [None]
